FAERS Safety Report 13542384 (Version 1)
Quarter: 2017Q2

REPORT INFORMATION
  Report Type: Spontaneous
  Country: US (occurrence: US)
  Receive Date: 20170512
  Receipt Date: 20170512
  Transmission Date: 20170830
  Serious: Yes (Other)
  Sender: FDA-Public Use
  Company Number: US-ROCHE-694176

PATIENT
  Age: 68 Year
  Sex: Female
  Weight: 46.3 kg

DRUGS (9)
  1. VITAMIN B6 [Concomitant]
     Active Substance: PYRIDOXINE HYDROCHLORIDE
     Route: 065
  2. ATIVAN [Concomitant]
     Active Substance: LORAZEPAM
     Route: 065
  3. COMPAZINE [Concomitant]
     Active Substance: PROCHLORPERAZINE MALEATE
     Route: 065
  4. AVASTIN [Suspect]
     Active Substance: BEVACIZUMAB
     Indication: COLORECTAL CANCER METASTATIC
     Dosage: TIME INTERVAL BETWEEN LAST DOSE OF DRUG AND ONSET DATE OF EVENT: 10 DAYS
     Route: 042
     Dates: start: 20090910, end: 20091007
  5. AVASTIN [Suspect]
     Active Substance: BEVACIZUMAB
     Route: 042
  6. IMODIUM [Concomitant]
     Active Substance: LOPERAMIDE HYDROCHLORIDE
     Route: 065
  7. ZANTAC [Concomitant]
     Active Substance: RANITIDINE HYDROCHLORIDE
     Route: 065
  8. FLAXSEED [Concomitant]
     Active Substance: FLAX SEED
     Dosage: DRUG: FLAX SEED OIL
     Route: 065
  9. CALCIUM [Concomitant]
     Active Substance: CALCIUM
     Route: 065

REACTIONS (1)
  - Impaired healing [Recovered/Resolved]

NARRATIVE: CASE EVENT DATE: 200910
